FAERS Safety Report 19271515 (Version 2)
Quarter: 2021Q4

REPORT INFORMATION
  Report Type: Spontaneous
  Country: US (occurrence: None)
  Receive Date: 20210519
  Receipt Date: 20211105
  Transmission Date: 20220303
  Serious: No
  Sender: FDA-Public Use
  Company Number: 2021A342929

PATIENT
  Age: 24917 Day
  Sex: Female
  Weight: 90.7 kg

DRUGS (3)
  1. SYMBICORT [Suspect]
     Active Substance: BUDESONIDE\FORMOTEROL FUMARATE DIHYDRATE
     Indication: Asthma late onset
     Dosage: 80/4.5 MCG. TWO PUFFS TWO TIMES A DAY
     Route: 055
  2. ALBUTEROL [Concomitant]
     Active Substance: ALBUTEROL
     Indication: Asthma
     Dosage: UNKNOWN AS REQUIRED
     Route: 055
  3. FLUTICASONE [Concomitant]
     Active Substance: FLUTICASONE
     Indication: Sinus congestion
     Route: 045
     Dates: start: 20160212

REACTIONS (8)
  - Weight increased [Not Recovered/Not Resolved]
  - Weight fluctuation [Not Recovered/Not Resolved]
  - Dysphonia [Not Recovered/Not Resolved]
  - Intentional product misuse [Unknown]
  - Drug dose omission by device [Recovered/Resolved]
  - Product use issue [Not Recovered/Not Resolved]
  - Device issue [Unknown]
  - Intentional device misuse [Unknown]

NARRATIVE: CASE EVENT DATE: 20170101
